FAERS Safety Report 18539893 (Version 1)
Quarter: 2020Q4

REPORT INFORMATION
  Report Type: Spontaneous
  Country: US (occurrence: US)
  Receive Date: 20201124
  Receipt Date: 20201124
  Transmission Date: 20210114
  Serious: Yes (Hospitalization)
  Sender: FDA-Public Use
  Company Number: None

PATIENT
  Age: 77 Year
  Sex: Male
  Weight: 97.98 kg

DRUGS (4)
  1. BENADRYL 25MG [Concomitant]
     Dates: start: 20201123, end: 20201123
  2. BAMLANIVIMAB. [Suspect]
     Active Substance: BAMLANIVIMAB
     Indication: SARS-COV-2 TEST POSITIVE
     Dosage: ?          OTHER FREQUENCY:ONCE;?
     Route: 041
  3. TYLENOL 650MG [Concomitant]
     Dates: start: 20201123, end: 20201123
  4. CARDIZEM [Concomitant]
     Active Substance: DILTIAZEM HYDROCHLORIDE
     Dates: start: 20201123, end: 20201123

REACTIONS (4)
  - Tachycardia [None]
  - Infusion related reaction [None]
  - Bronchospasm [None]
  - Tachypnoea [None]

NARRATIVE: CASE EVENT DATE: 20201124
